FAERS Safety Report 14022333 (Version 1)
Quarter: 2017Q3

REPORT INFORMATION
  Report Type: Spontaneous
  Country: US (occurrence: US)
  Receive Date: 20170929
  Receipt Date: 20170929
  Transmission Date: 20171128
  Serious: No
  Sender: FDA-Public Use
  Company Number: None

PATIENT
  Age: 27 Year
  Sex: Male
  Weight: 72 kg

DRUGS (4)
  1. SERTRALINE [Concomitant]
     Active Substance: SERTRALINE HYDROCHLORIDE
  2. ARIPIPRAZOLE. [Suspect]
     Active Substance: ARIPIPRAZOLE
     Indication: OFF LABEL USE
     Dosage: ?          QUANTITY:.5 TABLET(S);?
     Route: 048
     Dates: start: 20170922, end: 20170927
  3. KLONOPIN [Concomitant]
     Active Substance: CLONAZEPAM
  4. I-METHYLFOLATE [Concomitant]

REACTIONS (4)
  - Amnesia [None]
  - Fatigue [None]
  - Akathisia [None]
  - Lethargy [None]

NARRATIVE: CASE EVENT DATE: 20170922
